FAERS Safety Report 23460491 (Version 1)
Quarter: 2024Q1

REPORT INFORMATION
  Report Type: Report from Study
  Country: US (occurrence: US)
  Receive Date: 20240131
  Receipt Date: 20240131
  Transmission Date: 20240409
  Serious: No
  Sender: FDA-Public Use
  Company Number: US-AstraZeneca-CH-00551313A

PATIENT
  Sex: Female

DRUGS (1)
  1. SOLIRIS [Suspect]
     Active Substance: ECULIZUMAB
     Indication: Myasthenia gravis
     Dosage: UNK
     Route: 042

REACTIONS (11)
  - Dysstasia [Unknown]
  - Head discomfort [Unknown]
  - Mass [Unknown]
  - Asthenia [Unknown]
  - Symptom recurrence [Not Recovered/Not Resolved]
  - Insurance issue [Unknown]
  - Fall [Unknown]
  - Muscular weakness [Unknown]
  - Eye disorder [Unknown]
  - Fatigue [Unknown]
  - Grip strength decreased [Unknown]

NARRATIVE: CASE EVENT DATE: 20240111
